FAERS Safety Report 7422147-8 (Version None)
Quarter: 2011Q2

REPORT INFORMATION
  Report Type: 
  Country: None (occurrence: None)
  Receive Date: 20110418
  Receipt Date: 20110216
  Transmission Date: 20111010
  Serious: Yes (Hospitalization, Other)
  Sender: FDA-Public Use
  Company Number: US-BAYER-201039452NA

PATIENT
  Age: 18 Year
  Sex: Female
  Weight: 119.27 kg

DRUGS (3)
  1. HYDROCODONE BITARTRATE AND ACETAMINOPHEN [Concomitant]
     Indication: PAIN MANAGEMENT
  2. YAZ [Suspect]
     Indication: CONTRACEPTION
     Dosage: UNK
     Route: 048
     Dates: start: 20060901, end: 20070801
  3. ACETAMINOPHEN W/ CODEINE [Concomitant]
     Indication: PAIN MANAGEMENT

REACTIONS (5)
  - CHOLECYSTITIS CHRONIC [None]
  - CHOLESTEROSIS [None]
  - CHOLECYSTECTOMY [None]
  - ABDOMINAL PAIN [None]
  - CHOLELITHIASIS [None]
